FAERS Safety Report 9744219 (Version 1)
Quarter: 2013Q4

REPORT INFORMATION
  Report Type: Spontaneous
  Country: US (occurrence: US)
  Receive Date: 20131210
  Receipt Date: 20131210
  Transmission Date: 20140711
  Serious: No
  Sender: FDA-Public Use
  Company Number: US-BIOGENIDEC-2013BI100832

PATIENT
  Sex: Female

DRUGS (13)
  1. TECFIDERA [Suspect]
     Indication: MULTIPLE SCLEROSIS
     Route: 048
     Dates: start: 20130711
  2. CALCIUM + D [Concomitant]
  3. BENADRYL [Concomitant]
  4. EFFEXOR [Concomitant]
  5. RITALIN [Concomitant]
  6. VITAMIN B12 [Concomitant]
  7. TOPIRAMATE [Concomitant]
  8. GABAPENTIN [Concomitant]
  9. BACLOFEN [Concomitant]
  10. CLONAZEPAM [Concomitant]
  11. DETROL LA [Concomitant]
  12. METHOCARBOMAL [Concomitant]
  13. DRONABINOL [Concomitant]

REACTIONS (2)
  - Hyperhidrosis [Not Recovered/Not Resolved]
  - Flushing [Not Recovered/Not Resolved]
